FAERS Safety Report 8107952-7 (Version None)
Quarter: 2012Q1

REPORT INFORMATION
  Report Type: 
  Country: None (occurrence: None)
  Receive Date: 20120202
  Receipt Date: 20120116
  Transmission Date: 20120608
  Serious: Yes (Other)
  Sender: FDA-Public Use
  Company Number: DE-ROCHE-1035902

PATIENT
  Age: 41 Year

DRUGS (1)
  1. MABTHERA [Suspect]
     Indication: KIDNEY TRANSPLANT REJECTION

REACTIONS (3)
  - POLYOMAVIRUS-ASSOCIATED NEPHROPATHY [None]
  - DEEP VEIN THROMBOSIS [None]
  - URINARY TRACT INFECTION [None]
